FAERS Safety Report 6555455-3 (Version None)
Quarter: 2010Q1

REPORT INFORMATION
  Report Type: 
  Country: None (occurrence: None)
  Receive Date: 20100128
  Receipt Date: 20100122
  Transmission Date: 20100710
  Serious: Yes (Hospitalization)
  Sender: FDA-Public Use
  Company Number: US-BAYER-201012249NA

PATIENT
  Age: 82 Year
  Sex: Female

DRUGS (4)
  1. AVELOX [Suspect]
     Indication: PNEUMONIA
     Dosage: TOTAL DAILY DOSE: 400 MG
     Route: 048
     Dates: start: 20091231, end: 20100103
  2. ADVAIR DISKAS [Concomitant]
     Indication: PNEUMONIA
  3. PRILOSEC [Concomitant]
  4. ANTI HYPERTENSION MEDICATION [Concomitant]

REACTIONS (2)
  - DIARRHOEA [None]
  - VOMITING [None]
